FAERS Safety Report 6212268-X (Version None)
Quarter: 2009Q2

REPORT INFORMATION
  Report Type: 
  Country: None (occurrence: None)
  Receive Date: 20090529
  Receipt Date: 20090512
  Transmission Date: 20091009
  Serious: Yes (Disabling)
  Sender: FDA-Public Use
  Company Number: ADE#   09-216DPR

PATIENT
  Age: 87 Year
  Sex: Male

DRUGS (6)
  1. DIGOXIN [Suspect]
     Indication: MYOCARDIAL INFARCTION
     Dosage: ONE TABLET DAILY   8-9 YEARS
  2. MEDICATIONS TO LOWER BLOOD PRESSURE [Concomitant]
  3. MEDICATIONS TO LOWER CHOLESTEROL [Concomitant]
  4. LOTS OF OTHER DRUGS [Concomitant]
  5. OIL PILLS [Concomitant]
  6. ASCORBIC ACID [Concomitant]

REACTIONS (2)
  - CARDIAC STRESS TEST ABNORMAL [None]
  - MYOCARDIAL INFARCTION [None]
